FAERS Safety Report 11125758 (Version 1)
Quarter: 2015Q2

REPORT INFORMATION
  Report Type: Spontaneous
  Country: US (occurrence: US)
  Receive Date: 20150520
  Receipt Date: 20150520
  Transmission Date: 20150821
  Serious: No
  Sender: FDA-Public Use
  Company Number: US-SA-2014SA070980

PATIENT
  Age: 62 Year
  Sex: Male

DRUGS (5)
  1. 5-FU [Concomitant]
     Active Substance: FLUOROURACIL
     Indication: CHOLANGIOCARCINOMA
     Dosage: CONTINOUS INFUSION
     Dates: start: 20140103
  2. ELOXATIN [Suspect]
     Active Substance: OXALIPLATIN
     Indication: CHOLANGIOCARCINOMA
     Route: 065
  3. ELOXATIN [Suspect]
     Active Substance: OXALIPLATIN
     Indication: CHOLANGIOCARCINOMA
     Route: 065
     Dates: start: 20140103
  4. ELOXATIN [Suspect]
     Active Substance: OXALIPLATIN
     Indication: CHOLANGIOCARCINOMA
     Route: 042
     Dates: start: 20140414, end: 20140414
  5. EPIRUBICIN [Concomitant]
     Active Substance: EPIRUBICIN
     Indication: CHOLANGIOCARCINOMA
     Dates: start: 20140103

REACTIONS (1)
  - Wrong technique in drug usage process [Unknown]

NARRATIVE: CASE EVENT DATE: 20140404
